FAERS Safety Report 16544889 (Version 1)
Quarter: 2019Q3

REPORT INFORMATION
  Report Type: Spontaneous
  Country: US (occurrence: US)
  Receive Date: 20190528
  Receipt Date: 20190528
  Transmission Date: 20191004
  Serious: Yes (Other)
  Sender: FDA-Public Use
  Company Number: None

PATIENT
  Age: 36 Year
  Sex: Male

DRUGS (1)
  1. SPRYCEL [Suspect]
     Active Substance: DASATINIB
     Route: 048
     Dates: start: 201806

REACTIONS (3)
  - Gastrooesophageal reflux disease [None]
  - Chest pain [None]
  - Myalgia [None]

NARRATIVE: CASE EVENT DATE: 20190528
